FAERS Safety Report 9466627 (Version 2)
Quarter: 2013Q3

REPORT INFORMATION
  Report Type: Spontaneous
  Country: FR (occurrence: FR)
  Receive Date: 20130820
  Receipt Date: 20130823
  Transmission Date: 20140515
  Serious: Yes (Death, Other)
  Sender: FDA-Public Use
  Company Number: FR-VERTEX PHARMACEUTICALS INC-2013-008905

PATIENT
  Age: 48 Year
  Sex: Male

DRUGS (6)
  1. INCIVO [Suspect]
     Indication: HEPATITIS C VIRUS TEST POSITIVE
     Dosage: 750 MG, TID, TABLET
     Route: 048
     Dates: start: 20120321
  2. PEGASYS [Suspect]
     Indication: HEPATITIS C VIRUS TEST POSITIVE
     Dosage: DOSAGE FORM: SOLUTION FOR INJECTION
     Route: 058
     Dates: start: 20120321
  3. RIBAVIRINE [Suspect]
     Indication: HEPATITIS C VIRUS TEST POSITIVE
     Dosage: DOSAGE FORM: UNKNOWN
     Route: 048
     Dates: start: 20120321
  4. EFFERALGAN CODEINE [Suspect]
     Indication: BACK PAIN
     Dosage: DOSAGE FORM: TABLET
     Route: 048
  5. VALIUM [Concomitant]
     Indication: PRODUCT USED FOR UNKNOWN INDICATION
     Dosage: DOSAGE FORM: UNSPECIFIED
     Route: 065
  6. SERESTA [Concomitant]
     Indication: PRODUCT USED FOR UNKNOWN INDICATION
     Dosage: DOSAGE FORM: UNSPECIFIED
     Route: 065

REACTIONS (4)
  - Gastrointestinal haemorrhage [Fatal]
  - Asthenia [Unknown]
  - Depression [Unknown]
  - Irritability [Unknown]
